FAERS Safety Report 17893672 (Version 3)
Quarter: 2020Q3

REPORT INFORMATION
  Report Type: Spontaneous
  Country: GB (occurrence: GB)
  Receive Date: 20200615
  Receipt Date: 20200706
  Transmission Date: 20201103
  Serious: Yes (Death, Other)
  Sender: FDA-Public Use
  Company Number: GB-ROCHE-2616549

PATIENT
  Age: 66 Year
  Sex: Female

DRUGS (16)
  1. FLUCONAZOLE. [Concomitant]
     Active Substance: FLUCONAZOLE
     Indication: LYMPHOCYTE ADOPTIVE THERAPY
     Dosage: UNK
     Route: 065
     Dates: start: 20200106
  2. ACICLOVIR [Concomitant]
     Active Substance: ACYCLOVIR
     Indication: LYMPHOCYTE ADOPTIVE THERAPY
     Dosage: UNK
     Route: 065
     Dates: start: 20200103
  3. TOCILIZUMAB. [Suspect]
     Active Substance: TOCILIZUMAB
     Indication: IMMUNE EFFECTOR CELL-ASSOCIATED NEUROTOXICITY SYNDROME
     Route: 065
     Dates: start: 20200113, end: 20200120
  4. SILTUXIMAB [Suspect]
     Active Substance: SILTUXIMAB
     Indication: CYTOKINE RELEASE SYNDROME
     Route: 042
     Dates: start: 20191230
  5. PREDNISOLONE. [Concomitant]
     Active Substance: PREDNISOLONE
     Indication: MYASTHENIC SYNDROME
     Dosage: UNK
     Route: 065
  6. ONDANSETRON [Concomitant]
     Active Substance: ONDANSETRON
     Indication: LYMPHOCYTE ADOPTIVE THERAPY
     Dosage: UNK
     Route: 065
     Dates: start: 20200103
  7. DEXAMETHASONE. [Suspect]
     Active Substance: DEXAMETHASONE
     Indication: IMMUNE EFFECTOR CELL-ASSOCIATED NEUROTOXICITY SYNDROME
     Route: 065
     Dates: start: 20200121
  8. METOCLOPRAMIDE. [Concomitant]
     Active Substance: METOCLOPRAMIDE
     Indication: LYMPHOCYTE ADOPTIVE THERAPY
     Dosage: UNK
     Route: 065
     Dates: start: 20200103
  9. ANAKINRA [Suspect]
     Active Substance: ANAKINRA
     Indication: IMMUNE EFFECTOR CELL-ASSOCIATED NEUROTOXICITY SYNDROME
     Route: 065
     Dates: start: 20200124
  10. ZARZIO [Concomitant]
     Active Substance: FILGRASTIM
     Indication: LYMPHOCYTE ADOPTIVE THERAPY
     Dosage: UNK
     Route: 065
     Dates: start: 20200130
  11. LEVETIRACETAM. [Concomitant]
     Active Substance: LEVETIRACETAM
     Indication: LYMPHOCYTE ADOPTIVE THERAPY
     Dosage: UNK
     Route: 065
     Dates: start: 20200108
  12. CIPROFLOXACIN. [Concomitant]
     Active Substance: CIPROFLOXACIN
     Indication: LYMPHOCYTE ADOPTIVE THERAPY
     Dosage: UNK
     Route: 065
     Dates: start: 20200103
  13. SILTUXIMAB [Suspect]
     Active Substance: SILTUXIMAB
     Route: 042
     Dates: start: 20200210
  14. METHYLPREDNISOLONE. [Suspect]
     Active Substance: METHYLPREDNISOLONE
     Indication: IMMUNE EFFECTOR CELL-ASSOCIATED NEUROTOXICITY SYNDROME
     Route: 065
  15. PREDNISOLONE. [Concomitant]
     Active Substance: PREDNISOLONE
     Indication: MYASTHENIC SYNDROME
     Dosage: ()
     Route: 065
     Dates: start: 20200210
  16. AZATHIOPRINE. [Concomitant]
     Active Substance: AZATHIOPRINE
     Indication: MYASTHENIC SYNDROME
     Dosage: UNK
     Route: 065

REACTIONS (3)
  - Immune effector cell-associated neurotoxicity syndrome [Unknown]
  - Cytokine release syndrome [Unknown]
  - Toxicity to various agents [Fatal]

NARRATIVE: CASE EVENT DATE: 202003
